FAERS Safety Report 19048594 (Version 5)
Quarter: 2021Q2

REPORT INFORMATION
  Report Type: Report from Study
  Country: US (occurrence: US)
  Receive Date: 20210323
  Receipt Date: 20210531
  Transmission Date: 20210717
  Serious: Yes (Other)
  Sender: FDA-Public Use
  Company Number: NVSC2021US066883

PATIENT
  Age: 61 Year
  Sex: Female

DRUGS (3)
  1. ENTRESTO [Suspect]
     Active Substance: SACUBITRIL\VALSARTAN
     Indication: CARDIAC FAILURE CHRONIC
     Dosage: 100 MG, BID (49/51 MG)
     Route: 048
     Dates: start: 20210225
  2. ENTRESTO [Suspect]
     Active Substance: SACUBITRIL\VALSARTAN
     Dosage: 200 MG (97/103 MG), BID
     Route: 048
  3. ENTRESTO [Suspect]
     Active Substance: SACUBITRIL\VALSARTAN
     Dosage: 200 MG 200 MG (97/103 MG), BID
     Route: 048
     Dates: start: 20210225, end: 202104

REACTIONS (7)
  - Loss of consciousness [Unknown]
  - General physical health deterioration [Not Recovered/Not Resolved]
  - Throat clearing [Unknown]
  - Diarrhoea [Not Recovered/Not Resolved]
  - Renal disorder [Recovering/Resolving]
  - Asthenia [Not Recovered/Not Resolved]
  - Product dose omission issue [Not Recovered/Not Resolved]

NARRATIVE: CASE EVENT DATE: 202102
